FAERS Safety Report 8155815-3 (Version None)
Quarter: 2012Q1

REPORT INFORMATION
  Report Type: 
  Country: None (occurrence: None)
  Receive Date: 20120222
  Receipt Date: 20120216
  Transmission Date: 20120608
  Serious: Yes (Hospitalization)
  Sender: FDA-Public Use
  Company Number: GB-AMGEN-GBRSP2011033111

PATIENT
  Sex: Male
  Weight: 0.907 kg

DRUGS (1)
  1. ARANESP [Suspect]
     Dosage: UNK UNK, QWK
     Route: 064
     Dates: start: 20090819

REACTIONS (1)
  - PREMATURE BABY [None]
